FAERS Safety Report 6305512-1 (Version None)
Quarter: 2009Q3

REPORT INFORMATION
  Report Type: 
  Country: None (occurrence: None)
  Receive Date: 20090811
  Receipt Date: 20090730
  Transmission Date: 20100115
  Serious: Yes (Other)
  Sender: FDA-Public Use
  Company Number: US-TYCO HEALTHCARE/MALLINCKRODT-T200801414

PATIENT

DRUGS (25)
  1. OPTIMARK [Suspect]
     Indication: DRUG USE FOR UNKNOWN INDICATION
     Dosage: UNK
  2. OMNISCAN [Suspect]
     Indication: NUCLEAR MAGNETIC RESONANCE IMAGING BRAIN
     Dosage: WITH AND WITHOUT CONTRAST
     Route: 042
     Dates: start: 20050827, end: 20050827
  3. OMNISCAN [Suspect]
     Indication: NUCLEAR MAGNETIC RESONANCE IMAGING
     Dosage: WITH AND WITHOUT CONTRAST
     Route: 042
     Dates: start: 20050912, end: 20050912
  4. OMNISCAN [Suspect]
     Dosage: WITH AND WITHOUT CONTRAST
     Route: 042
     Dates: start: 20060315, end: 20060315
  5. OMNISCAN [Suspect]
     Dosage: WITH AND WITHOUT CONTRAST
     Route: 042
     Dates: start: 20061012, end: 20061012
  6. OMNISCAN [Suspect]
     Dosage: WITH AND WITHOUT CONTRAST
     Route: 042
     Dates: start: 20061013, end: 20061013
  7. GADOLINIUM [Suspect]
     Indication: NUCLEAR MAGNETIC RESONANCE IMAGING
     Dosage: WITH AND WITHOUT CONTRAST
     Route: 042
     Dates: start: 20070523, end: 20070523
  8. AMBIEN [Concomitant]
     Indication: INSOMNIA
     Dosage: 10 MG, QD
  9. ATIVAN [Concomitant]
     Indication: ANXIETY
     Dosage: .5 MG, PRN
  10. CELEBREX [Concomitant]
     Indication: ARTHRITIS
     Dosage: 100 MG, QD
  11. ASPIRIN [Concomitant]
     Indication: ARTHRITIS
     Dosage: 81 MG, QD
  12. NEPHROCAPS [Concomitant]
     Indication: VITAMIN SUPPLEMENTATION
     Dosage: ONE PER DAY
  13. RENAGEL                            /01459901/ [Concomitant]
     Indication: RENAL DISORDER
     Dosage: 40 MG, BID
  14. MIDODRINE [Concomitant]
     Indication: HYPERTENSION
     Dosage: 20 MG, BID
  15. RESTASIS [Concomitant]
     Indication: DRY EYE
     Dosage: 4/DAY
  16. REQUIP [Concomitant]
     Indication: RESTLESS LEGS SYNDROME
     Dosage: 1 MG, QD
  17. NEURONTIN [Concomitant]
     Indication: PAIN
     Dosage: 100 MG, QD
  18. RENVELA [Concomitant]
     Indication: BLOOD PHOSPHORUS
     Dosage: 6/DAY
  19. PHOSLO [Concomitant]
     Indication: BLOOD PHOSPHORUS
     Dosage: 15/DAY
  20. IMITREX                            /01044801/ [Concomitant]
     Indication: MIGRAINE
     Dosage: UNK, 1 PRN
  21. THERA TEARS [Concomitant]
     Indication: DRY EYE
     Dosage: UNK, BID (2/DAY)
  22. SYSTANE [Concomitant]
     Indication: DRY EYE
     Dosage: EVERY FEW HOURS
  23. PROTONIX                           /01263201/ [Concomitant]
     Indication: GASTROOESOPHAGEAL REFLUX DISEASE
     Dosage: 40 MG, QD
  24. EPOGEN [Concomitant]
     Indication: DIALYSIS
     Dosage: UNK,AS NEEDED PRN
  25. IRON [Concomitant]
     Indication: DIALYSIS
     Dosage: UNK,AS NEEDED PRN

REACTIONS (10)
  - ARTHRITIS [None]
  - BACK PAIN [None]
  - CARDIAC FAILURE CONGESTIVE [None]
  - HEPATITIS C [None]
  - HYPOTENSION [None]
  - KIDNEY TRANSPLANT REJECTION [None]
  - NEPHROGENIC SYSTEMIC FIBROSIS [None]
  - NEUROPATHY PERIPHERAL [None]
  - OFF LABEL USE [None]
  - URINARY TRACT INFECTION [None]
